FAERS Safety Report 23717474 (Version 1)
Quarter: 2024Q2

REPORT INFORMATION
  Report Type: Spontaneous
  Country: CN (occurrence: CN)
  Receive Date: 20240408
  Receipt Date: 20240408
  Transmission Date: 20240716
  Serious: Yes (Hospitalization)
  Sender: FDA-Public Use
  Company Number: CN-Accord-417478

PATIENT
  Sex: Female
  Weight: 0.64 kg

DRUGS (8)
  1. CARBOPLATIN [Suspect]
     Active Substance: CARBOPLATIN
     Route: 064
     Dates: start: 2022
  2. ETOPOSIDE [Suspect]
     Active Substance: ETOPOSIDE
     Route: 064
     Dates: start: 2022
  3. METHOTREXATE [Suspect]
     Active Substance: METHOTREXATE
     Route: 064
     Dates: start: 2022
  4. PACLITAXEL [Suspect]
     Active Substance: PACLITAXEL
     Route: 064
     Dates: start: 2022
  5. CYCLOPHOSPHAMIDE [Suspect]
     Active Substance: CYCLOPHOSPHAMIDE
     Route: 064
     Dates: start: 2022
  6. VINCRISTINE [Suspect]
     Active Substance: VINCRISTINE
     Route: 064
     Dates: start: 2022
  7. ACTINOMYCIN D [Suspect]
     Active Substance: DACTINOMYCIN
     Route: 064
     Dates: start: 2022
  8. NIFEDIPINE [Suspect]
     Active Substance: NIFEDIPINE
     Route: 064
     Dates: start: 2022

REACTIONS (2)
  - Foetal exposure during pregnancy [Unknown]
  - Low birth weight baby [Recovered/Resolved]
